FAERS Safety Report 10169784 (Version 1)
Quarter: 2014Q2

REPORT INFORMATION
  Report Type: Spontaneous
  Country: BR (occurrence: BR)
  Receive Date: 20140513
  Receipt Date: 20140513
  Transmission Date: 20141212
  Serious: Yes (Other)
  Sender: FDA-Public Use
  Company Number: BR-JNJFOC-20140504703

PATIENT
  Age: 71 Year
  Sex: Male

DRUGS (1)
  1. SIMPONI [Suspect]
     Indication: PRODUCT USED FOR UNKNOWN INDICATION
     Route: 058
     Dates: start: 20130815, end: 20140413

REACTIONS (2)
  - Bladder neoplasm [Not Recovered/Not Resolved]
  - Pain [Unknown]
